FAERS Safety Report 24223412 (Version 1)
Quarter: 2024Q3

REPORT INFORMATION
  Report Type: Spontaneous
  Country: US (occurrence: US)
  Receive Date: 20240819
  Receipt Date: 20240819
  Transmission Date: 20241017
  Serious: Yes (Other)
  Sender: MERCK
  Company Number: US-009507513-2408USA005141

PATIENT
  Age: 34 Year
  Sex: Female

DRUGS (14)
  1. KEYTRUDA [Suspect]
     Active Substance: PEMBROLIZUMAB
     Indication: HER2 positive breast cancer
     Dosage: 400 MILLIGRAM, EVERY 6 WEEKS (CYCLE 1 DAY 1)
  2. KEYTRUDA [Suspect]
     Active Substance: PEMBROLIZUMAB
     Indication: Triple negative breast cancer
     Dosage: 200 MILLIGRAM, Q3W (DDAC CYCLE 4)
  3. DOXORUBICIN [Concomitant]
     Active Substance: DOXORUBICIN
     Indication: HER2 positive breast cancer
     Dosage: 60 MILLIGRAM/SQ. METER, QOW (EVERY 2 WEEKS) FOR FOUR TOTAL CYCLES
  4. DOXORUBICIN [Concomitant]
     Active Substance: DOXORUBICIN
     Indication: Triple negative breast cancer
  5. CYCLOPHOSPHAMIDE [Concomitant]
     Active Substance: CYCLOPHOSPHAMIDE
     Indication: HER2 positive breast cancer
     Dosage: 600 MILLIGRAM/SQ. METER, QOW (EVERY 2 WEEKS) FOR FOUR TOTAL CYCLES
  6. CYCLOPHOSPHAMIDE [Concomitant]
     Active Substance: CYCLOPHOSPHAMIDE
     Indication: Triple negative breast cancer
  7. PACLITAXEL [Concomitant]
     Active Substance: PACLITAXEL
     Indication: HER2 positive breast cancer
     Dosage: 80 MILLIGRAM/SQ. METER, QW
  8. PACLITAXEL [Concomitant]
     Active Substance: PACLITAXEL
     Indication: Triple negative breast cancer
  9. CARBOPLATIN [Concomitant]
     Active Substance: CARBOPLATIN
     Indication: HER2 positive breast cancer
     Dosage: AREA UNDER CURVE 5, QW
  10. CARBOPLATIN [Concomitant]
     Active Substance: CARBOPLATIN
     Indication: Triple negative breast cancer
  11. TRASTUZUMAB [Concomitant]
     Active Substance: TRASTUZUMAB
     Indication: HER2 positive breast cancer
     Dosage: 8 MG/M2 LOADING FOLLOWED BY 6MG/M2 THEREAFTER, QW
  12. TRASTUZUMAB [Concomitant]
     Active Substance: TRASTUZUMAB
     Indication: Triple negative breast cancer
  13. PERTUZUMAB [Concomitant]
     Active Substance: PERTUZUMAB
     Indication: HER2 positive breast cancer
     Dosage: 840 MG LOADING FOLLOWED BY 420 MG THEREAFTER, QW
  14. PERTUZUMAB [Concomitant]
     Active Substance: PERTUZUMAB
     Indication: Triple negative breast cancer

REACTIONS (3)
  - Immune-mediated hyperthyroidism [Unknown]
  - Immune-mediated thyroiditis [Unknown]
  - Off label use [Unknown]
